FAERS Safety Report 8855847 (Version 1)
Quarter: 2012Q4

REPORT INFORMATION
  Report Type: Spontaneous
  Country: US (occurrence: None)
  Receive Date: 20121022
  Receipt Date: 20121022
  Transmission Date: 20130627
  Serious: No
  Sender: FDA-Public Use
  Company Number: None

PATIENT
  Age: 7 Year
  Sex: Male
  Weight: 25.86 kg

DRUGS (2)
  1. SINGULAIR [Suspect]
     Dosage: 4 mg once daily po
     Route: 048
     Dates: start: 20070902, end: 20120902
  2. SINGULAIR [Suspect]
     Dosage: 4 mg once daily po
     Route: 048
     Dates: start: 20070902, end: 20120902

REACTIONS (5)
  - Aggression [None]
  - Anger [None]
  - Abnormal behaviour [None]
  - Physical assault [None]
  - Anger [None]
